FAERS Safety Report 16949003 (Version 1)
Quarter: 2019Q4

REPORT INFORMATION
  Report Type: Spontaneous
  Country: US (occurrence: US)
  Receive Date: 20191023
  Receipt Date: 20191023
  Transmission Date: 20200122
  Serious: Yes (Other)
  Sender: FDA-Public Use
  Company Number: US-NAPPMUNDI-USA-2019-0147461

PATIENT
  Sex: Male

DRUGS (6)
  1. XANAX [Suspect]
     Active Substance: ALPRAZOLAM
     Indication: DRUG ABUSE
     Dosage: UNK
     Route: 065
  2. PERCOCET                           /00446701/ [Suspect]
     Active Substance: ACETAMINOPHEN\OXYCODONE HYDROCHLORIDE\OXYCODONE TEREPHTHALATE
     Indication: DRUG ABUSE
     Dosage: UNK
     Route: 065
  3. MARIJUANA [Suspect]
     Active Substance: CANNABIS SATIVA SUBSP. INDICA TOP
     Indication: PRODUCT USED FOR UNKNOWN INDICATION
     Dosage: UNK
     Route: 065
  4. ALCOHOL. [Suspect]
     Active Substance: ALCOHOL
     Indication: PRODUCT USED FOR UNKNOWN INDICATION
     Dosage: UNK
     Route: 065
  5. OXYCONTIN [Suspect]
     Active Substance: OXYCODONE HYDROCHLORIDE
     Indication: DRUG ABUSE
     Dosage: UNK
     Route: 048
  6. HEROIN [Suspect]
     Active Substance: DIAMORPHINE
     Indication: DRUG ABUSE
     Dosage: UNK
     Route: 065

REACTIONS (3)
  - Drug dependence [Recovering/Resolving]
  - Drug withdrawal syndrome [Unknown]
  - Substance abuse [Recovering/Resolving]
